FAERS Safety Report 15647475 (Version 1)
Quarter: 2018Q4

REPORT INFORMATION
  Report Type: Spontaneous
  Country: US (occurrence: US)
  Receive Date: 20181122
  Receipt Date: 20181122
  Transmission Date: 20190205
  Serious: Yes (Death, Other)
  Sender: FDA-Public Use
  Company Number: US-TEVA-2018-US-977608

PATIENT
  Sex: Female

DRUGS (8)
  1. CARBAMAZEPINE. [Suspect]
     Active Substance: CARBAMAZEPINE
     Dosage: UNSPECIFIED UP-TITRATED DOSAGE
     Route: 065
  2. LEVETIRACETAM. [Suspect]
     Active Substance: LEVETIRACETAM
     Indication: GENERALISED TONIC-CLONIC SEIZURE
     Dosage: AFTER UNSPECIFIED DOSAGE, THE DRUG WAS UP-TITRATED
     Route: 065
  3. LACOSAMIDE. [Suspect]
     Active Substance: LACOSAMIDE
     Dosage: UNSPECIFIED UP-TITRATED DOSAGE
     Route: 065
  4. CARBAMAZEPINE. [Suspect]
     Active Substance: CARBAMAZEPINE
     Indication: GENERALISED TONIC-CLONIC SEIZURE
     Dosage: AFTER UNSPECIFIED DOSAGE, THE DRUG WAS UP-TITRATED
     Route: 065
  5. CLONAZEPAM. [Suspect]
     Active Substance: CLONAZEPAM
     Indication: GENERALISED TONIC-CLONIC SEIZURE
     Dosage: AFTER UNSPECIFIED DOSAGE, THE DRUG WAS UP-TITRATED
     Route: 065
  6. CLONAZEPAM. [Suspect]
     Active Substance: CLONAZEPAM
     Dosage: UNSPECIFIED UP-TITRATED DOSAGE
     Route: 065
  7. LEVETIRACETAM. [Suspect]
     Active Substance: LEVETIRACETAM
     Dosage: UNSPECIFIED UP-TITRATED DOSAGE
     Route: 065
  8. LACOSAMIDE. [Suspect]
     Active Substance: LACOSAMIDE
     Indication: GENERALISED TONIC-CLONIC SEIZURE
     Dosage: AFTER UNSPECIFIED DOSAGE, THE DRUG WAS UP-TITRATED
     Route: 065

REACTIONS (4)
  - Seizure [Unknown]
  - Drug ineffective [Unknown]
  - Asphyxia [Fatal]
  - Choking [Unknown]
